FAERS Safety Report 21505564 (Version 1)
Quarter: 2022Q4

REPORT INFORMATION
  Report Type: Spontaneous
  Country: FR (occurrence: FR)
  Receive Date: 20221026
  Receipt Date: 20221026
  Transmission Date: 20230113
  Serious: Yes (Other)
  Sender: FDA-Public Use
  Company Number: FR-ALKEM LABORATORIES LIMITED-FR-ALKEM-2022-11492

PATIENT
  Sex: Male

DRUGS (3)
  1. DRONABINOL [Suspect]
     Active Substance: DRONABINOL
     Indication: Neuralgia
     Dosage: 2.5 MILLIGRAM (CAPSULE SOFT)
     Route: 065
     Dates: start: 20201117, end: 20220412
  2. DRONABINOL [Suspect]
     Active Substance: DRONABINOL
     Dosage: 2.5 MILLIGRAM, BID (CAPSULE SOFT)
     Route: 065
     Dates: start: 20220412, end: 20220824
  3. DRONABINOL [Suspect]
     Active Substance: DRONABINOL
     Dosage: 2.5 MILLIGRAM, TID (CAPSULE SOFT)
     Route: 065
     Dates: start: 20220824, end: 20220926

REACTIONS (6)
  - Erectile dysfunction [Unknown]
  - Adverse event [Unknown]
  - Therapeutic product effect decreased [Unknown]
  - Therapeutic response decreased [Unknown]
  - Off label use [Unknown]
  - Product prescribing issue [Unknown]
